FAERS Safety Report 13331312 (Version 2)
Quarter: 2017Q1

REPORT INFORMATION
  Report Type: Report from Study
  Country: US (occurrence: US)
  Receive Date: 20170313
  Receipt Date: 20170317
  Transmission Date: 20170428
  Serious: Yes (Other)
  Sender: FDA-Public Use
  Company Number: US-BAXALTA-2017BLT001927

PATIENT
  Sex: Male

DRUGS (1)
  1. GAMMAGARD LIQUID [Suspect]
     Active Substance: HUMAN IMMUNOGLOBULIN G
     Indication: PRIMARY IMMUNODEFICIENCY SYNDROME
     Dosage: INFUSION 2 HOURS
     Route: 042
     Dates: start: 201702

REACTIONS (5)
  - Incorrect drug administration rate [Unknown]
  - Headache [Recovered/Resolved]
  - Renal pain [Recovering/Resolving]
  - Vertigo [Recovered/Resolved]
  - Back pain [Recovered/Resolved]

NARRATIVE: CASE EVENT DATE: 2017
